FAERS Safety Report 8176092-3 (Version None)
Quarter: 2012Q1

REPORT INFORMATION
  Report Type: 
  Country: None (occurrence: None)
  Receive Date: 20120301
  Receipt Date: 20120218
  Transmission Date: 20120608
  Serious: Yes (Hospitalization, Other)
  Sender: FDA-Public Use
  Company Number: PT-BRISTOL-MYERS SQUIBB COMPANY-16385676

PATIENT
  Age: 27 Year
  Sex: Male

DRUGS (5)
  1. CISPLATIN [Suspect]
     Indication: TESTIS CANCER
     Dosage: FOUR 21-DAY CYCLES- 20 MG/M2 AND 28-DAY CYCLES -20 MG/M2
  2. ETOPOSIDE [Suspect]
     Indication: TESTIS CANCER
     Dosage: FOUR 21-DAY CYCLES
  3. IFOSFAMIDE [Suspect]
     Indication: TESTIS CANCER
     Dosage: 28-DAY CYCLES
  4. VINBLASTINE SULFATE [Suspect]
     Indication: TESTIS CANCER
     Dosage: 28-DAY CYCLES
  5. BLEOMYCIN SULFATE [Suspect]
     Indication: TESTIS CANCER
     Dosage: 1DF:30U, FOUR 21-DAY CYCLES

REACTIONS (3)
  - BRONCHOPULMONARY ASPERGILLOSIS [None]
  - NEUTROPENIA [None]
  - LYMPHOPENIA [None]
